FAERS Safety Report 9646279 (Version 3)
Quarter: 2013Q4

REPORT INFORMATION
  Report Type: Report from Study
  Country: FR (occurrence: FR)
  Receive Date: 20131025
  Receipt Date: 20131210
  Transmission Date: 20140711
  Serious: Yes (Hospitalization)
  Sender: FDA-Public Use
  Company Number: PHHY2013FR081794

PATIENT
  Age: 70 Year
  Sex: Male

DRUGS (5)
  1. MYCOPHENOLIC ACID [Suspect]
     Indication: RENAL TRANSPLANT
     Dosage: 720 MG, BID
     Route: 048
     Dates: start: 20130415
  2. PROGRAF [Suspect]
     Indication: RENAL TRANSPLANT
     Dosage: ONCE DAILY
     Dates: start: 20130419, end: 20130517
  3. PROGRAF [Suspect]
     Dosage: 3 MG, QD
     Dates: start: 20130517
  4. PROTON PUMP INHIBITORS [Concomitant]
     Dosage: UNK UKN, UNK
  5. SULFAMETHOXAZOLE AND TRIMETHOPRIM [Concomitant]
     Dosage: UNK UKN, UNK

REACTIONS (3)
  - Renal failure acute [Recovered/Resolved]
  - Pneumonia bacterial [Recovered/Resolved]
  - Cytomegalovirus infection [Unknown]
